FAERS Safety Report 22176335 (Version 1)
Quarter: 2023Q2

REPORT INFORMATION
  Report Type: Spontaneous
  Country: US (occurrence: US)
  Receive Date: 20230405
  Receipt Date: 20230405
  Transmission Date: 20230722
  Serious: Yes (Hospitalization)
  Sender: FDA-Public Use
  Company Number: US-CYCLE PHARMACEUTICALS LTD-2023-CYC-000010

PATIENT

DRUGS (1)
  1. NITYR [Suspect]
     Active Substance: NITISINONE
     Indication: Tyrosinaemia
     Dosage: 50 MG, BID, FIVE (10 MG) TABLETS BY MOUTH TWO TIMES A DAY
     Route: 048

REACTIONS (1)
  - Helicobacter test positive [Unknown]

NARRATIVE: CASE EVENT DATE: 20230323
